FAERS Safety Report 5483172-X (Version None)
Quarter: 2007Q4

REPORT INFORMATION
  Report Type: 
  Country: None (occurrence: None)
  Receive Date: 20071009
  Receipt Date: 20070927
  Transmission Date: 20080405
  Serious: Yes (Death, Hospitalization)
  Sender: FDA-Public Use
  Company Number: FRP07000916

PATIENT
  Age: 93 Year
  Sex: Female

DRUGS (4)
  1. ACTONEL [Suspect]
     Dosage: ORAL
     Route: 048
     Dates: start: 20040101, end: 20070721
  2. OLMESARTAN MEDOXOMIL [Suspect]
     Dosage: ORAL
     Route: 048
     Dates: end: 20070712
  3. RISPERDAL [Suspect]
     Dosage: 2 MG, DAILY, ORAL
     Route: 048
     Dates: start: 20040101, end: 20070721
  4. KARDEGIC /00002703/ (ACETYLSALICYLATE LYSINE) [Suspect]
     Dosage: ORAL
     Route: 048
     Dates: end: 20070721

REACTIONS (7)
  - BLOOD CREATINE INCREASED [None]
  - BLOOD UREA INCREASED [None]
  - DEHYDRATION [None]
  - EATING DISORDER [None]
  - GENERAL PHYSICAL HEALTH DETERIORATION [None]
  - HYPERNATRAEMIA [None]
  - SOMNOLENCE [None]
